FAERS Safety Report 6600071-8 (Version None)
Quarter: 2010Q1

REPORT INFORMATION
  Report Type: 
  Country: None (occurrence: None)
  Receive Date: 20100224
  Receipt Date: 20100212
  Transmission Date: 20100710
  Serious: Yes (Hospitalization)
  Sender: FDA-Public Use
  Company Number: DE-JNJFOC-20030703734

PATIENT
  Age: 30 Year
  Sex: Female

DRUGS (7)
  1. REMICADE [Suspect]
     Indication: AUTOIMMUNE HEPATITIS
     Route: 042
  2. REMICADE [Suspect]
     Route: 042
  3. REMICADE [Suspect]
     Route: 042
  4. REMICADE [Suspect]
     Route: 042
  5. AZATHIOPRINE [Suspect]
     Indication: AUTOIMMUNE HEPATITIS
     Route: 048
  6. DECORTIN-H [Suspect]
     Indication: AUTOIMMUNE HEPATITIS
     Route: 048
  7. VITAMIN TAB [Suspect]
     Indication: DRUG USE FOR UNKNOWN INDICATION
     Route: 050

REACTIONS (3)
  - DRUG EXPOSURE BEFORE PREGNANCY [None]
  - HERPES ZOSTER OPHTHALMIC [None]
  - PSOAS ABSCESS [None]
